FAERS Safety Report 14346381 (Version 6)
Quarter: 2018Q2

REPORT INFORMATION
  Report Type: Report from Study
  Country: US (occurrence: US)
  Receive Date: 20180103
  Receipt Date: 20180426
  Transmission Date: 20180711
  Serious: Yes (Other)
  Sender: FDA-Public Use
  Company Number: US-PFIZER INC-2017526886

PATIENT
  Age: 64 Year
  Sex: Female

DRUGS (3)
  1. IBRANCE [Suspect]
     Active Substance: PALBOCICLIB
     Dosage: 125 MG, DAILY
     Route: 048
     Dates: start: 201711, end: 20180122
  2. IBRANCE [Suspect]
     Active Substance: PALBOCICLIB
     Indication: BREAST CANCER FEMALE
     Dosage: 125 MG, DAILY
     Route: 048
     Dates: start: 20171102, end: 201711
  3. IBRANCE [Suspect]
     Active Substance: PALBOCICLIB
     Dosage: 100 MG, DAILY
     Route: 048
     Dates: start: 20180201

REACTIONS (9)
  - Neutropenia [Unknown]
  - Neoplasm progression [Unknown]
  - Anaemia [Unknown]
  - Bone marrow failure [Unknown]
  - Leukopenia [Unknown]
  - White blood cell count decreased [Unknown]
  - Nasopharyngitis [Unknown]
  - Hypothyroidism [Not Recovered/Not Resolved]
  - Cough [Unknown]

NARRATIVE: CASE EVENT DATE: 2017
